FAERS Safety Report 9284391 (Version 1)
Quarter: 2013Q2

REPORT INFORMATION
  Report Type: Spontaneous
  Country: CN (occurrence: CN)
  Receive Date: 20130510
  Receipt Date: 20130510
  Transmission Date: 20140414
  Serious: Yes (Life-Threatening)
  Sender: FDA-Public Use
  Company Number: CN-SANOFI-AVENTIS-2013SA045054

PATIENT
  Age: 58 Year
  Sex: Male
  Weight: 55 kg

DRUGS (3)
  1. ELOXATIN [Suspect]
     Indication: CHEMOTHERAPY
     Route: 041
     Dates: start: 20111207, end: 20111207
  2. CAPECITABINE [Concomitant]
     Dosage: 2G TWICE A DAY D1-14 EVERY THREE WEEKS
  3. TRASTUZUMAB [Concomitant]
     Route: 042
     Dates: start: 20111206

REACTIONS (6)
  - Sinus tachycardia [Recovering/Resolving]
  - Palpitations [Recovering/Resolving]
  - Respiratory distress [Recovering/Resolving]
  - Dyspnoea [Recovering/Resolving]
  - Breath sounds abnormal [Recovering/Resolving]
  - Malaise [Recovering/Resolving]
